FAERS Safety Report 16921648 (Version 1)
Quarter: 2019Q4

REPORT INFORMATION
  Report Type: Spontaneous
  Country: US (occurrence: US)
  Receive Date: 20191015
  Receipt Date: 20191015
  Transmission Date: 20200122
  Serious: Yes (Life-Threatening, Hospitalization, Other)
  Sender: FDA-Public Use
  Company Number: US-BRISTOL-MYERS SQUIBB COMPANY-BMS-2019-099413

PATIENT
  Age: 72 Year
  Sex: Female

DRUGS (2)
  1. IPILIMUMAB [Suspect]
     Active Substance: IPILIMUMAB
     Indication: PAPILLARY THYROID CANCER
     Dosage: UNK
     Route: 065
  2. NIVOLUMAB [Suspect]
     Active Substance: NIVOLUMAB
     Indication: PAPILLARY THYROID CANCER
     Dosage: UNK
     Route: 065

REACTIONS (4)
  - Pneumonitis [Unknown]
  - Adrenal insufficiency [Unknown]
  - Hypophysitis [Unknown]
  - Intentional product use issue [Unknown]
